FAERS Safety Report 11643244 (Version 1)
Quarter: 2015Q4

REPORT INFORMATION
  Report Type: Spontaneous
  Country: US (occurrence: US)
  Receive Date: 20151020
  Receipt Date: 20151020
  Transmission Date: 20160304
  Serious: No
  Sender: FDA-Public Use
  Company Number: US-ASTRAZENECA-2015SE99059

PATIENT
  Age: 19983 Day
  Sex: Female
  Weight: 113.4 kg

DRUGS (2)
  1. PULMICORT FLEXHALER [Suspect]
     Active Substance: BUDESONIDE
     Indication: ASTHMA
     Route: 055
  2. ALBUTEROL. [Concomitant]
     Active Substance: ALBUTEROL
     Indication: BRONCHITIS
     Dosage: AS REQUIRED
     Route: 055
     Dates: start: 2013

REACTIONS (4)
  - Malaise [Unknown]
  - Drug dose omission [Unknown]
  - Product quality issue [Unknown]
  - Hypersensitivity [Unknown]

NARRATIVE: CASE EVENT DATE: 20150912
